FAERS Safety Report 6643913-2 (Version None)
Quarter: 2010Q1

REPORT INFORMATION
  Report Type: 
  Country: None (occurrence: None)
  Receive Date: 20100322
  Receipt Date: 20100315
  Transmission Date: 20100710
  Serious: Yes (Life-Threatening, Other)
  Sender: FDA-Public Use
  Company Number: IT-ELI_LILLY_AND_COMPANY-IT201003004008

PATIENT
  Sex: Male

DRUGS (2)
  1. HUMALOG [Suspect]
     Indication: DIABETES MELLITUS
     Dosage: 22 IU, 3/D
     Route: 058
     Dates: start: 20100227, end: 20100309
  2. HUMALOG [Suspect]
     Indication: DIABETES MELLITUS
     Dosage: 22 IU, 3/D
     Route: 058
     Dates: end: 20100201

REACTIONS (4)
  - COMA [None]
  - DRUG DISPENSING ERROR [None]
  - HYPOGLYCAEMIA [None]
  - WRONG DRUG ADMINISTERED [None]
